FAERS Safety Report 6247159-1 (Version None)
Quarter: 2009Q2

REPORT INFORMATION
  Report Type: 
  Country: None (occurrence: None)
  Receive Date: 20090624
  Receipt Date: 20090624
  Transmission Date: 20091009
  Serious: No
  Sender: FDA-Public Use
  Company Number: None

PATIENT
  Sex: Female
  Weight: 61.9 kg

DRUGS (6)
  1. HEPARIN [Suspect]
     Indication: PULMONARY EMBOLISM
     Dosage: 1450 UNITS/HR
     Dates: start: 20090328, end: 20090401
  2. APAP TAB [Concomitant]
  3. FUROSEMIDE [Concomitant]
  4. MENINGOCOCCAL VACCINE [Concomitant]
  5. POLYETHYLENE GLYCOL [Concomitant]
  6. SENNA [Concomitant]

REACTIONS (1)
  - HEPARIN-INDUCED THROMBOCYTOPENIA [None]
